FAERS Safety Report 8817843 (Version 2)
Quarter: 2015Q2

REPORT INFORMATION
  Report Type: Report from Study
  Country: US (occurrence: US)
  Receive Date: 20121004
  Receipt Date: 20150417
  Transmission Date: 20150821
  Serious: Yes (Death)
  Sender: FDA-Public Use
  Company Number: US-ROCHE-1130848

PATIENT
  Sex: Male

DRUGS (28)
  1. RITUXAN [Suspect]
     Active Substance: RITUXIMAB
     Indication: THROMBOCYTOPENIA
  2. NEXIUM [Concomitant]
     Active Substance: ESOMEPRAZOLE MAGNESIUM
     Dosage: DELAYED RELEASE CAPSULE
     Route: 065
  3. RITUXAN [Suspect]
     Active Substance: RITUXIMAB
     Indication: PANCYTOPENIA
     Dosage: IN 500 ML OF NORMAL SALINE
     Route: 042
     Dates: start: 20100106
  4. ALLOPURINOL. [Concomitant]
     Active Substance: ALLOPURINOL
     Route: 048
  5. PERCOCET [Concomitant]
     Active Substance: ACETAMINOPHEN\OXYCODONE HYDROCHLORIDE
     Indication: PAIN
     Dosage: 5-325MG 1 TAB PO Q4HR PRN
     Route: 048
  6. ZOLOFT [Concomitant]
     Active Substance: SERTRALINE HYDROCHLORIDE
     Dosage: EVERY AM
     Route: 048
  7. MARINOL (UNITED STATES) [Concomitant]
     Route: 048
  8. BENADRYL [Concomitant]
     Active Substance: DIPHENHYDRAMINE HYDROCHLORIDE
     Route: 048
  9. RITUXAN [Suspect]
     Active Substance: RITUXIMAB
     Indication: MENINGITIS
  10. ACETAMINOPHEN/TRAMADOL HYDROCHLORIDE [Concomitant]
     Dosage: 37.5-325 MG, PRN
     Route: 048
  11. TAMIFLU [Concomitant]
     Active Substance: OSELTAMIVIR PHOSPHATE
     Route: 048
  12. EC-NAPROSYN [Concomitant]
     Active Substance: NAPROXEN
     Route: 048
  13. MEDROL [Concomitant]
     Active Substance: METHYLPREDNISOLONE
     Route: 048
  14. PREDNISONE. [Concomitant]
     Active Substance: PREDNISONE
     Route: 048
  15. AGGRENOX [Concomitant]
     Active Substance: ASPIRIN\DIPYRIDAMOLE
     Dosage: 25-200 MG CP 12
     Route: 065
  16. NIASPAN [Concomitant]
     Active Substance: NIACIN
     Dosage: EXTENDED RELEASE
     Route: 065
  17. MIRTAZAPINE. [Concomitant]
     Active Substance: MIRTAZAPINE
     Route: 048
  18. TYLENOL [Concomitant]
     Active Substance: ACETAMINOPHEN
     Dosage: EXTRA STRENGTH
     Route: 048
  19. OXYCONTIN [Concomitant]
     Active Substance: OXYCODONE HYDROCHLORIDE
     Dosage: EXTENDED RELEASE 12 H
     Route: 048
  20. K-DUR [Concomitant]
     Active Substance: POTASSIUM CHLORIDE
     Route: 048
  21. PROAIR HFA [Concomitant]
     Active Substance: ALBUTEROL SULFATE
     Dosage: 108 MCG, 2 PUFFS 4 TIMES A DAY AS NEEDED WITH SPACER
     Route: 065
  22. ACETAMINOPHEN/HYDROCODONE [Concomitant]
     Active Substance: ACETAMINOPHEN\HYDROCODONE
     Dosage: 7.5-325 MG, PRN
     Route: 065
  23. RITUXAN [Suspect]
     Active Substance: RITUXIMAB
     Indication: OFF LABEL USE
  24. ZETIA [Concomitant]
     Active Substance: EZETIMIBE
     Route: 048
  25. FOLIC ACID. [Concomitant]
     Active Substance: FOLIC ACID
     Dosage: 5 TABLETS PO QAM X 14 DAYS THEN 1 TAB PO QAM
     Route: 048
  26. RITUXAN [Suspect]
     Active Substance: RITUXIMAB
     Indication: POST TRANSFUSION PURPURA
  27. ZOFRAN [Concomitant]
     Active Substance: ONDANSETRON HYDROCHLORIDE
     Dosage: 1 TABLET ON FRIDAY, SATURDAY, SUNDAY AND Q8HR PRN
     Route: 048
  28. CHONDROITIN [Concomitant]
     Active Substance: CHONDROITIN
     Dosage: 1 TABLET ON FRIDAY, SATURDAY, SUNDAY AND Q8HR PRN
     Route: 048

REACTIONS (7)
  - Decreased appetite [Unknown]
  - Contusion [Unknown]
  - Diarrhoea [Unknown]
  - Asthenia [Unknown]
  - Death [Fatal]
  - Muscular weakness [Unknown]
  - Tremor [Unknown]
